FAERS Safety Report 8590844-7 (Version None)
Quarter: 2012Q3

REPORT INFORMATION
  Report Type: 
  Country: None (occurrence: None)
  Receive Date: 20120813
  Receipt Date: 20120809
  Transmission Date: 20120928
  Serious: Yes (Hospitalization, Other)
  Sender: FDA-Public Use
  Company Number: AU-ROCHE-802698

PATIENT
  Age: 58 Year
  Sex: Male
  Weight: 124 kg

DRUGS (15)
  1. PERINDOPRIL ERBUMINE [Concomitant]
  2. DEXAMETHASONE [Suspect]
     Dates: start: 20110920, end: 20110928
  3. ZELBORAF [Suspect]
     Route: 048
  4. DEXAMETHASONE [Suspect]
     Indication: PRODUCT USED FOR UNKNOWN INDICATION
     Dates: start: 20110920, end: 20110928
  5. DEXAMETHASONE [Suspect]
     Dates: start: 20110929, end: 20111003
  6. DEXAMETHASONE [Suspect]
     Dates: start: 20110920, end: 20111205
  7. DEXAMETHASONE [Suspect]
     Dates: start: 20111024, end: 20111031
  8. NAPROXEN [Concomitant]
     Dates: start: 20000101
  9. DEXAMETHASONE [Suspect]
     Dates: start: 20111122, end: 20111128
  10. DEXAMETHASONE [Suspect]
     Dates: end: 20111213
  11. NEXIUM [Concomitant]
  12. DEXAMETHASONE [Suspect]
     Dates: start: 20111129, end: 20111205
  13. ZELBORAF [Suspect]
     Indication: METASTATIC MALIGNANT MELANOMA
     Dosage: DATE OF LAST DOSE PRIOR TO SAE WAS:15 SEP 2011
     Route: 048
     Dates: start: 20110804, end: 20110916
  14. DEXAMETHASONE [Suspect]
     Dates: start: 20111004, end: 20111023
  15. DEXAMETHASONE [Suspect]
     Dates: start: 20111101, end: 20111121

REACTIONS (3)
  - DIABETES MELLITUS [None]
  - DRUG-INDUCED LIVER INJURY [None]
  - HEADACHE [None]
